FAERS Safety Report 20895350 (Version 1)
Quarter: 2022Q2

REPORT INFORMATION
  Report Type: Spontaneous
  Country: US (occurrence: US)
  Receive Date: 20220531
  Receipt Date: 20220531
  Transmission Date: 20220721
  Serious: Yes (Hospitalization, Other)
  Sender: FDA-Public Use
  Company Number: US-Stemline Therapeutics, Inc.-2022ST000048

PATIENT
  Age: 79 Year
  Sex: Female

DRUGS (5)
  1. ELZONRIS [Suspect]
     Active Substance: TAGRAXOFUSP-ERZS
     Indication: Blastic plasmacytoid dendritic cell neoplasia
     Dosage: FIRST CYCLE (ALL 5 DOSES GIVEN)
     Route: 042
     Dates: start: 20220419
  2. ELZONRIS [Suspect]
     Active Substance: TAGRAXOFUSP-ERZS
  3. ELZONRIS [Suspect]
     Active Substance: TAGRAXOFUSP-ERZS
  4. ELZONRIS [Suspect]
     Active Substance: TAGRAXOFUSP-ERZS
  5. ELZONRIS [Suspect]
     Active Substance: TAGRAXOFUSP-ERZS

REACTIONS (2)
  - Renal impairment [Unknown]
  - Capillary leak syndrome [Recovered/Resolved]
